FAERS Safety Report 5092777-X (Version None)
Quarter: 2006Q3

REPORT INFORMATION
  Report Type: 
  Country: None (occurrence: None)
  Receive Date: 20060830
  Receipt Date: 20060828
  Transmission Date: 20061208
  Serious: Yes (Death)
  Sender: FDA-Public Use
  Company Number: 2006PK01785

PATIENT
  Age: 69 Year
  Sex: Male
  Weight: 71 kg

DRUGS (1)
  1. ZOLADEX [Suspect]
     Indication: PROSTATE CANCER
     Route: 058
     Dates: start: 20060309, end: 20060530

REACTIONS (1)
  - CEREBELLAR TUMOUR [None]
